FAERS Safety Report 8121537-8 (Version None)
Quarter: 2012Q1

REPORT INFORMATION
  Report Type: 
  Country: None (occurrence: None)
  Receive Date: 20120203
  Receipt Date: 20120120
  Transmission Date: 20120608
  Serious: Yes (Other)
  Sender: FDA-Public Use
  Company Number: TR-1190073

PATIENT
  Age: 55 Year
  Sex: Female

DRUGS (2)
  1. TOBREX [Suspect]
     Dosage: (EVERY 2 HOURS OPHTHALMIC)
     Route: 047
  2. TOBRADEX [Suspect]
     Dosage: (OPHTHALMIC)
     Route: 047

REACTIONS (7)
  - UVEITIS [None]
  - PHOTOPHOBIA [None]
  - CONJUNCTIVAL HYPERAEMIA [None]
  - ANTERIOR CHAMBER CELL [None]
  - DEVICE MATERIAL ISSUE [None]
  - WRONG DRUG ADMINISTERED [None]
  - HYPOPYON [None]
